FAERS Safety Report 6784476-0 (Version None)
Quarter: 2010Q2

REPORT INFORMATION
  Report Type: 
  Country: None (occurrence: None)
  Receive Date: 20100622
  Receipt Date: 20100611
  Transmission Date: 20101027
  Serious: Yes (Other)
  Sender: FDA-Public Use
  Company Number: US-JNJFOC-20100510678

PATIENT
  Age: 8 Year
  Sex: Female
  Weight: 36.29 kg

DRUGS (7)
  1. CHILDREN'S MOTRIN [Suspect]
     Route: 048
  2. CHILDREN'S MOTRIN [Suspect]
     Indication: PYREXIA
     Route: 048
  3. CHILDREN'S TYLENOL SUSPENSION [Suspect]
     Indication: PYREXIA
     Route: 048
  4. CHILDREN'S TYLENOL SUSPENSION [Suspect]
     Indication: HEADACHE
     Route: 048
  5. BENADRYL [Suspect]
     Indication: MULTIPLE ALLERGIES
     Dosage: 1 OR 2 TSP DAILY AT NIGHT
     Route: 065
  6. BENADRYL [Suspect]
     Indication: SLEEP DISORDER THERAPY
     Dosage: 1 OR 2 TSP DAILY AT NIGHT
     Route: 065
  7. CHILDREN'S TYLENOL PLUS MULTI-SYMPTOM COLD [Suspect]
     Indication: NASOPHARYNGITIS
     Route: 048

REACTIONS (10)
  - ABDOMINAL PAIN UPPER [None]
  - ASTHMA [None]
  - DIARRHOEA [None]
  - DIZZINESS [None]
  - FATIGUE [None]
  - HEADACHE [None]
  - NASOPHARYNGITIS [None]
  - PRODUCT QUALITY ISSUE [None]
  - PYREXIA [None]
  - VOMITING [None]
